FAERS Safety Report 11340291 (Version 3)
Quarter: 2016Q1

REPORT INFORMATION
  Report Type: Spontaneous
  Country: US (occurrence: US)
  Receive Date: 20150803
  Receipt Date: 20160330
  Transmission Date: 20160525
  Serious: Yes (Hospitalization, Other)
  Sender: FDA-Public Use
  Company Number: ADR-2015-01436

PATIENT
  Age: 70 Year
  Sex: Male

DRUGS (3)
  1. DILAUDID [Suspect]
     Active Substance: HYDROMORPHONE HYDROCHLORIDE
     Dosage: 3.2 MG/DAY
     Route: 037
  2. UNKNOWN MEDICATIONS [Suspect]
     Active Substance: UNSPECIFIED INGREDIENT
  3. BACLOFEN. [Suspect]
     Active Substance: BACLOFEN
     Route: 037

REACTIONS (18)
  - Cerebrovascular accident [Unknown]
  - Urinary tract infection [Unknown]
  - Cervical vertebral fracture [Unknown]
  - Fall [Unknown]
  - Asthenia [Unknown]
  - Spinal cord compression [Unknown]
  - Cervical spinal stenosis [Unknown]
  - Psychotic disorder [Unknown]
  - Unevaluable event [Unknown]
  - No therapeutic response [Unknown]
  - Disturbance in attention [Unknown]
  - Delirium [Unknown]
  - Pulmonary embolism [Unknown]
  - Sedation [Unknown]
  - Insomnia [Unknown]
  - Pneumonia [Unknown]
  - Gait disturbance [Unknown]
  - Confusional state [Unknown]
